FAERS Safety Report 6194840-9 (Version None)
Quarter: 2009Q2

REPORT INFORMATION
  Report Type: 
  Country: None (occurrence: None)
  Receive Date: 20090519
  Receipt Date: 20080702
  Transmission Date: 20091009
  Serious: No
  Sender: FDA-Public Use
  Company Number: US-TYCO HEALTHCARE/MALLINCKRODT-T200801111

PATIENT

DRUGS (1)
  1. METHADONE [Suspect]
     Dosage: 10 MG, UNK

REACTIONS (2)
  - FEELING ABNORMAL [None]
  - THERAPEUTIC RESPONSE UNEXPECTED [None]
